FAERS Safety Report 17282090 (Version 1)
Quarter: 2020Q1

REPORT INFORMATION
  Report Type: Spontaneous
  Country: US (occurrence: US)
  Receive Date: 20200117
  Receipt Date: 20200117
  Transmission Date: 20200409
  Serious: No
  Sender: FDA-Public Use
  Company Number: US-ADAPT PHARMA INC.-2019ADP00086

PATIENT
  Age: 76 Year
  Sex: Male
  Weight: 50.34 kg

DRUGS (3)
  1. TRAMADOL. [Concomitant]
     Active Substance: TRAMADOL
  2. UNSPECIFIED MEDICATIONS [Concomitant]
     Active Substance: UNSPECIFIED INGREDIENT
  3. NARCAN [Suspect]
     Active Substance: NALOXONE HYDROCHLORIDE
     Indication: PRODUCT USED FOR UNKNOWN INDICATION
     Dosage: 4 MG, ONCE
     Route: 045
     Dates: start: 20190918, end: 20190918

REACTIONS (4)
  - Feeling of body temperature change [Recovered/Resolved]
  - Unintentional use for unapproved indication [Unknown]
  - Malaise [Recovered/Resolved]
  - Fatigue [Recovered/Resolved]

NARRATIVE: CASE EVENT DATE: 20190918
